FAERS Safety Report 5520777-1 (Version None)
Quarter: 2007Q4

REPORT INFORMATION
  Report Type: 
  Country: None (occurrence: None)
  Receive Date: 20071119
  Receipt Date: 20071109
  Transmission Date: 20080405
  Serious: Yes (Hospitalization)
  Sender: FDA-Public Use
  Company Number: US-KINGPHARMUSA00001-K200701452

PATIENT

DRUGS (10)
  1. ALTACE [Suspect]
     Dosage: 2.5 MG, QD
     Route: 048
     Dates: end: 20070823
  2. IMOVANE [Suspect]
     Dosage: 7.5 MG, QD
     Route: 048
     Dates: end: 20070821
  3. ASPEGIC 325 [Suspect]
     Dosage: 75 MG, QD
     Route: 048
     Dates: end: 20070826
  4. VANCOMYCIN [Suspect]
     Dosage: UNK, QD
     Route: 042
     Dates: start: 20070802, end: 20070824
  5. ISOPTIN [Suspect]
     Dosage: 240 MG, QD
     Route: 048
     Dates: start: 20070819, end: 20070822
  6. RIFAMPICIN [Suspect]
     Dosage: 2 U, QD
     Route: 048
     Dates: end: 20070824
  7. INEXIUM /01479302/ [Suspect]
     Dosage: 20 MG, QD
     Route: 048
     Dates: end: 20070823
  8. CORDARONE /00133102/ [Concomitant]
     Dosage: 200 MG, UNK
     Route: 048
     Dates: end: 20070826
  9. SINTROM [Concomitant]
     Dosage: .5 MG, UNK
     Route: 048
     Dates: end: 20070823
  10. DAPTOMYCIN [Concomitant]
     Dates: start: 20070818

REACTIONS (7)
  - ALANINE AMINOTRANSFERASE INCREASED [None]
  - ASPARTATE AMINOTRANSFERASE INCREASED [None]
  - BLOOD ALKALINE PHOSPHATASE INCREASED [None]
  - DRUG RASH WITH EOSINOPHILIA AND SYSTEMIC SYMPTOMS [None]
  - ENDOCARDITIS [None]
  - GAMMA-GLUTAMYLTRANSFERASE INCREASED [None]
  - RENAL FAILURE [None]
